FAERS Safety Report 25624704 (Version 1)
Quarter: 2025Q3

REPORT INFORMATION
  Report Type: Spontaneous
  Country: CN (occurrence: CN)
  Receive Date: 20250730
  Receipt Date: 20250730
  Transmission Date: 20251021
  Serious: Yes (Life-Threatening)
  Sender: ALEXION PHARMACEUTICALS
  Company Number: CN-ASTRAZENECA-202507CHN024346CN

PATIENT
  Age: 77 Year
  Sex: Male
  Weight: 81 kg

DRUGS (1)
  1. BRILINTA [Suspect]
     Active Substance: TICAGRELOR
     Indication: Cerebral artery stenosis
     Dosage: 90 MILLIGRAM, BID
     Dates: start: 20250723, end: 20250723

REACTIONS (2)
  - Chest discomfort [Recovering/Resolving]
  - Breath holding [Recovering/Resolving]

NARRATIVE: CASE EVENT DATE: 20250723
